FAERS Safety Report 10233158 (Version 1)
Quarter: 2014Q2

REPORT INFORMATION
  Report Type: Spontaneous
  Country: US (occurrence: None)
  Receive Date: 20140610
  Receipt Date: 20140610
  Transmission Date: 20141212
  Serious: No
  Sender: FDA-Public Use
  Company Number: NXG-14-008

PATIENT
  Age: 2 Year
  Sex: Female

DRUGS (1)
  1. POLYETHYLENE GLYCOL [Suspect]
     Dosage: 1 OR 2 TSP. DAILY
     Dates: start: 201209, end: 201309

REACTIONS (1)
  - Mood swings [None]
